FAERS Safety Report 12407619 (Version 3)
Quarter: 2016Q2

REPORT INFORMATION
  Report Type: Report from Study
  Country: CZ (occurrence: CZ)
  Receive Date: 20160526
  Receipt Date: 20160622
  Transmission Date: 20160815
  Serious: Yes (Other)
  Sender: FDA-Public Use
  Company Number: PHHY2016CZ070289

PATIENT
  Age: 36 Year
  Sex: Male

DRUGS (4)
  1. DABRAFENIB [Suspect]
     Active Substance: DABRAFENIB
     Dosage: 75 MG, BID
     Route: 048
     Dates: start: 20150416, end: 20150419
  2. TRAMETINIB [Suspect]
     Active Substance: TRAMETINIB
     Indication: METASTATIC MALIGNANT MELANOMA
     Dosage: 2 MG, QD
     Route: 048
     Dates: start: 20140502, end: 201503
  3. TRAMETINIB [Suspect]
     Active Substance: TRAMETINIB
     Dosage: 2 MG, QD
     Route: 048
     Dates: start: 20150416, end: 20150609
  4. DABRAFENIB [Suspect]
     Active Substance: DABRAFENIB
     Indication: METASTATIC MALIGNANT MELANOMA
     Dosage: 150 MG, BID
     Route: 048
     Dates: start: 20140502, end: 201503

REACTIONS (13)
  - Diarrhoea [Unknown]
  - Photosensitivity reaction [Recovered/Resolved]
  - Oedema [Recovered/Resolved]
  - Swelling face [Recovered/Resolved]
  - Blood creatinine increased [Unknown]
  - Photosensitivity reaction [Recovered/Resolved]
  - Fatigue [Recovered/Resolved]
  - Dermatitis [Recovered/Resolved]
  - Rash [Recovered/Resolved]
  - Erythema [Recovered/Resolved]
  - Hyperkeratosis [Recovered/Resolved]
  - Photosensitivity reaction [Unknown]
  - Dermatitis acneiform [Recovered/Resolved]

NARRATIVE: CASE EVENT DATE: 20140505
